FAERS Safety Report 9909297 (Version 1)
Quarter: 2014Q1

REPORT INFORMATION
  Report Type: Spontaneous
  Country: US (occurrence: None)
  Receive Date: 20140214
  Receipt Date: 20140214
  Transmission Date: 20141002
  Serious: No
  Sender: FDA-Public Use
  Company Number: None

PATIENT
  Age: 70 Year
  Sex: Female

DRUGS (2)
  1. HYDRO/APAP [Suspect]
     Dosage: 5/500   PO
     Route: 048
  2. PALIPERIDONE [Concomitant]

REACTIONS (2)
  - Pruritus [None]
  - Drug hypersensitivity [None]
